FAERS Safety Report 6022075-9 (Version None)
Quarter: 2008Q4

REPORT INFORMATION
  Report Type: 
  Country: None (occurrence: None)
  Receive Date: 20081229
  Receipt Date: 20081210
  Transmission Date: 20090506
  Serious: No
  Sender: FDA-Public Use
  Company Number: US-B.I. PHARMACEUTICALS,INC./RIDGEFIELD-2008-BP-18460BP

PATIENT
  Sex: Male

DRUGS (5)
  1. FLOMAX [Suspect]
     Indication: BENIGN PROSTATIC HYPERPLASIA
     Dosage: .4MG
     Route: 048
     Dates: start: 20081208
  2. ASPIRIN [Concomitant]
     Indication: ANTICOAGULANT THERAPY
     Dosage: 81MG
     Route: 048
     Dates: start: 20060101
  3. TOPROL-XL [Concomitant]
     Indication: HYPERTENSION
     Dosage: 12.5MG
     Route: 048
     Dates: start: 20060101
  4. DIOVAN [Concomitant]
     Indication: HYPERTENSION
     Route: 048
     Dates: start: 20060101
  5. SIMCOR [Concomitant]
     Indication: BLOOD CHOLESTEROL INCREASED
     Route: 048
     Dates: start: 20080701

REACTIONS (1)
  - HEADACHE [None]
